FAERS Safety Report 14654965 (Version 1)
Quarter: 2018Q1

REPORT INFORMATION
  Report Type: Spontaneous
  Country: US (occurrence: US)
  Receive Date: 20180319
  Receipt Date: 20180319
  Transmission Date: 20180509
  Serious: No
  Sender: FDA-Public Use
  Company Number: US-GLAXOSMITHKLINE-US2018040621

PATIENT
  Sex: Male
  Weight: 89 kg

DRUGS (1)
  1. EQUATE NICOTINE [Suspect]
     Active Substance: NICOTINE
     Indication: SMOKING CESSATION THERAPY
     Dosage: 21 MG, UNK
     Dates: start: 20180226, end: 20180304

REACTIONS (4)
  - Application site rash [Recovering/Resolving]
  - Application site urticaria [Unknown]
  - Application site reaction [Unknown]
  - Application site erythema [Unknown]
